FAERS Safety Report 6108068-1 (Version None)
Quarter: 2009Q1

REPORT INFORMATION
  Report Type: 
  Country: None (occurrence: None)
  Receive Date: 20090305
  Receipt Date: 20090305
  Transmission Date: 20090719
  Serious: Yes (Hospitalization)
  Sender: FDA-Public Use
  Company Number: None

PATIENT
  Age: 87 Year
  Sex: Female
  Weight: 97.7502 kg

DRUGS (1)
  1. AVELOX [Suspect]
     Indication: URINARY TRACT INFECTION
     Dosage: 400MG PO
     Route: 048
     Dates: start: 20090302, end: 20090302

REACTIONS (11)
  - ATELECTASIS [None]
  - DYSPNOEA [None]
  - HYPERVENTILATION [None]
  - LUNG INFILTRATION [None]
  - OLIGURIA [None]
  - PRURITUS [None]
  - PULMONARY CONGESTION [None]
  - PULMONARY OEDEMA [None]
  - RENAL FAILURE [None]
  - RENAL TUBULAR NECROSIS [None]
  - TUBULOINTERSTITIAL NEPHRITIS [None]
